FAERS Safety Report 4829368-9 (Version None)
Quarter: 2005Q4

REPORT INFORMATION
  Report Type: 
  Country: None (occurrence: None)
  Receive Date: 20051028
  Receipt Date: 20050815
  Transmission Date: 20060501
  Serious: No
  Sender: FDA-Public Use
  Company Number: COT_0194_2005

PATIENT
  Age: 55 Year
  Sex: Female

DRUGS (16)
  1. VENTAVIS (ILOPROST) INHALATIN SOLUTION [Suspect]
     Indication: PULMONARY HYPERTENSION
     Dosage: 2.5 MCG 6XD IH
     Route: 055
     Dates: start: 20050101, end: 20050810
  2. VENTAVIS [Suspect]
     Indication: PULMONARY HYPERTENSION
     Dosage: 5 MCG IH
     Route: 055
     Dates: start: 20050810
  3. FLOLAN [Concomitant]
  4. METHOTREXATE [Concomitant]
  5. LOTENSIN [Concomitant]
  6. CIPRO [Concomitant]
  7. VITAMIN B-12 [Concomitant]
  8. EFFEXOR [Concomitant]
  9. FOLIC ACID [Concomitant]
  10. WARFARIN SODIUM [Concomitant]
  11. NEXIUM [Concomitant]
  12. NORVASC [Concomitant]
  13. IMODIUM [Concomitant]
  14. ^FLUID PILL [Concomitant]
  15. HYDROCORTISONE [Concomitant]
  16. HYOSCYAMINE [Concomitant]

REACTIONS (1)
  - DRUG INEFFECTIVE [None]
